FAERS Safety Report 6529222-0 (Version None)
Quarter: 2009Q4

REPORT INFORMATION
  Report Type: 
  Country: None (occurrence: None)
  Receive Date: 20091231
  Receipt Date: 20091223
  Transmission Date: 20100525
  Serious: Yes (Death, Hospitalization)
  Sender: FDA-Public Use
  Company Number: WAES 0811USA00757

PATIENT
  Age: 14 Year
  Sex: Male

DRUGS (6)
  1. COZAAR [Suspect]
     Indication: PROTEINURIA
     Dosage: 50 MG/DAILY PO, 25 MG/DAILY PO
     Route: 048
     Dates: start: 20071219, end: 20081103
  2. COZAAR [Suspect]
     Indication: PROTEINURIA
     Dosage: 50 MG/DAILY PO, 25 MG/DAILY PO
     Route: 048
     Dates: start: 20081104, end: 20081128
  3. COZAAR [Suspect]
     Indication: PROTEINURIA
     Dosage: 50 MG/DAILY PO, 25 MG/DAILY PO
     Route: 048
     Dates: start: 20081129, end: 20090525
  4. PLACEBO BASELINE THERAPY [Suspect]
     Indication: PROTEINURIA
     Dosage: PO
     Route: 048
     Dates: start: 20070829, end: 20070925
  5. TAB PLACEBO (UNSPECIFIED) [Suspect]
     Indication: PROTEINURIA
     Dosage: PO
     Route: 048
     Dates: start: 20070926, end: 20071009
  6. TAB PLACEBO (UNSPECIFIED) [Suspect]
     Indication: PROTEINURIA
     Dosage: PO
     Route: 048
     Dates: start: 20071010, end: 20071218

REACTIONS (17)
  - ACUTE LYMPHOCYTIC LEUKAEMIA [None]
  - ANAEMIA [None]
  - APHASIA [None]
  - DISSEMINATED INTRAVASCULAR COAGULATION [None]
  - HEPATIC FAILURE [None]
  - HYPERKALAEMIA [None]
  - HYPONATRAEMIA [None]
  - LEUKOPENIA [None]
  - MULTI-ORGAN FAILURE [None]
  - PAIN IN EXTREMITY [None]
  - PLEURAL EFFUSION [None]
  - PNEUMONIA [None]
  - PYREXIA [None]
  - RENAL FAILURE [None]
  - RENAL FAILURE ACUTE [None]
  - SEPSIS [None]
  - THROMBOCYTOPENIA [None]
